FAERS Safety Report 4972305-7 (Version None)
Quarter: 2006Q2

REPORT INFORMATION
  Report Type: 
  Country: None (occurrence: None)
  Receive Date: 20060413
  Receipt Date: 20060405
  Transmission Date: 20061013
  Serious: Yes (Other)
  Sender: FDA-Public Use
  Company Number: JP-BRISTOL-MYERS SQUIBB COMPANY-13345731

PATIENT
  Age: 11 Year
  Sex: Male

DRUGS (10)
  1. ENDOXAN [Suspect]
  2. PREDONINE [Suspect]
     Indication: ACUTE LYMPHOCYTIC LEUKAEMIA
     Route: 041
     Dates: start: 20060126, end: 20060202
  3. PREDONINE [Suspect]
     Route: 048
     Dates: start: 20060202, end: 20060308
  4. BAKTAR [Concomitant]
  5. ONCOVIN [Concomitant]
  6. DAUNOMYCIN [Concomitant]
  7. LEUNASE [Concomitant]
  8. POLYMYXIN B SULFATE [Concomitant]
  9. FUNGIZONE [Concomitant]
  10. ANTITHROMBIN III [Concomitant]

REACTIONS (1)
  - BLOOD FIBRINOGEN DECREASED [None]
